FAERS Safety Report 7435151-0 (Version None)
Quarter: 2011Q2

REPORT INFORMATION
  Report Type: 
  Country: None (occurrence: None)
  Receive Date: 20110425
  Receipt Date: 20110419
  Transmission Date: 20111010
  Serious: Yes (Death, Hospitalization, Other)
  Sender: FDA-Public Use
  Company Number: PHHO2009US15141

PATIENT
  Sex: Female
  Weight: 123.9 kg

DRUGS (16)
  1. CYCLOSPORINE [Suspect]
     Indication: RENAL TRANSPLANT
     Dosage: 100 MG, 225 MG 1XDAY
     Route: 048
     Dates: start: 20080624
  2. HEPARIN [Concomitant]
  3. ISOSORBIDE DINITRATE [Concomitant]
  4. PREDNISONE [Suspect]
     Indication: RENAL TRANSPLANT
     Dosage: 5 MG, QD
     Route: 048
     Dates: start: 20080721
  5. FLUNISOLIDE [Concomitant]
  6. LEVOTHYROXINE SODIUM [Concomitant]
  7. OMEPRAZOLE [Concomitant]
  8. MOXIFLOXACIN [Concomitant]
     Dosage: UNK
     Dates: start: 20091113
  9. VALCYTE [Concomitant]
  10. CELLCEPT [Suspect]
     Dosage: 750 MG, BID
     Route: 048
     Dates: start: 20091112, end: 20091118
  11. HYDRALAZINE [Concomitant]
  12. SODIUM BICARBONATE [Concomitant]
  13. SPIRIVA [Concomitant]
  14. CELLCEPT [Suspect]
     Indication: RENAL TRANSPLANT
     Dosage: 500 MG, BID
     Route: 048
     Dates: start: 20090915, end: 20091111
  15. ADVAIR DISKUS 100/50 [Concomitant]
  16. METOPROLOL [Concomitant]

REACTIONS (58)
  - RIGHT VENTRICULAR SYSTOLIC PRESSURE DECREASED [None]
  - PLEURAL EFFUSION [None]
  - VENTRICULAR HYPERTROPHY [None]
  - PULMONARY VALVE INCOMPETENCE [None]
  - CARDIOMEGALY [None]
  - MENTAL STATUS CHANGES [None]
  - HYPOTENSION [None]
  - EPSTEIN-BARR VIRUS ASSOCIATED LYMPHOPROLIFERATIVE DISORDER [None]
  - LIVER FUNCTION TEST ABNORMAL [None]
  - DIABETIC KETOACIDOSIS [None]
  - LEUKOCYTOSIS [None]
  - AGITATION [None]
  - STAPHYLOCOCCAL INFECTION [None]
  - RIGHT VENTRICULAR FAILURE [None]
  - LEFT VENTRICULAR DYSFUNCTION [None]
  - RIGHT ATRIAL DILATATION [None]
  - AORTIC CALCIFICATION [None]
  - ELECTROCARDIOGRAM QT PROLONGED [None]
  - ATELECTASIS [None]
  - SEPSIS [None]
  - FLUID OVERLOAD [None]
  - TACHYARRHYTHMIA [None]
  - LEFT VENTRICULAR HYPERTROPHY [None]
  - RENAL FAILURE ACUTE [None]
  - VASODILATATION [None]
  - ATRIAL FIBRILLATION [None]
  - ATRIAL FLUTTER [None]
  - TRICUSPID VALVE INCOMPETENCE [None]
  - ASCITES [None]
  - DILATATION VENTRICULAR [None]
  - LEFT ATRIAL DILATATION [None]
  - INFERIOR VENA CAVA DILATATION [None]
  - GALLBLADDER DISORDER [None]
  - TRANSPLANT FAILURE [None]
  - URINE OUTPUT DECREASED [None]
  - HEPATITIS [None]
  - VENTRICULAR TACHYCARDIA [None]
  - GENERALISED OEDEMA [None]
  - HEPATIC CONGESTION [None]
  - BLOOD CREATININE INCREASED [None]
  - CONFUSIONAL STATE [None]
  - BACTERIAL INFECTION [None]
  - TROPONIN INCREASED [None]
  - RIGHT VENTRICULAR HYPERTROPHY [None]
  - RIGHT ATRIAL PRESSURE INCREASED [None]
  - ATRIOVENTRICULAR BLOCK [None]
  - SUPRAVENTRICULAR EXTRASYSTOLES [None]
  - ANURIA [None]
  - PYREXIA [None]
  - DEPRESSED LEVEL OF CONSCIOUSNESS [None]
  - AORTIC STENOSIS [None]
  - ARRHYTHMIA SUPRAVENTRICULAR [None]
  - VENTRICULAR FIBRILLATION [None]
  - PULMONARY HYPERTENSION [None]
  - ELECTROCARDIOGRAM T WAVE ABNORMAL [None]
  - CHOLELITHIASIS [None]
  - INFLAMMATION [None]
  - OLIGURIA [None]
